FAERS Safety Report 10156017 (Version 1)
Quarter: 2014Q2

REPORT INFORMATION
  Report Type: Report from Study
  Country: CH (occurrence: CH)
  Receive Date: 20140506
  Receipt Date: 20140506
  Transmission Date: 20141212
  Serious: Yes (Other)
  Sender: FDA-Public Use
  Company Number: CH-MYLANLABS-2014S1009904

PATIENT
  Age: 11 Year
  Sex: Female

DRUGS (2)
  1. MYCOPHENOLIC ACID [Suspect]
     Indication: SYSTEMIC LUPUS ERYTHEMATOSUS
     Route: 065
  2. MYCOPHENOLIC ACID [Suspect]
     Indication: OFF LABEL USE
     Route: 065

REACTIONS (2)
  - Functional gastrointestinal disorder [Unknown]
  - Apoptosis [Unknown]
